FAERS Safety Report 23810366 (Version 1)
Quarter: 2024Q2

REPORT INFORMATION
  Report Type: Spontaneous
  Country: US (occurrence: None)
  Receive Date: 20240501
  Receipt Date: 20240501
  Transmission Date: 20240716
  Serious: Yes (Death)
  Sender: FDA-Public Use
  Company Number: None

PATIENT
  Age: 11 Year
  Sex: Female
  Weight: 26.78 kg

DRUGS (2)
  1. IWILFIN [Suspect]
     Active Substance: EFLORNITHINE HYDROCHLORIDE
     Indication: Adrenal gland cancer
     Dosage: FREQUENCY : TWICE A DAY;?
     Route: 048
     Dates: start: 20240206, end: 20240428
  2. FENTANYL TRANSDERMAL SYSTEM [Concomitant]
     Active Substance: FENTANYL

REACTIONS (1)
  - Death [None]

NARRATIVE: CASE EVENT DATE: 20240428
